FAERS Safety Report 4631083-1 (Version None)
Quarter: 2005Q2

REPORT INFORMATION
  Report Type: 
  Country: None (occurrence: None)
  Receive Date: 20050406
  Receipt Date: 20050406
  Transmission Date: 20051028
  Serious: No
  Sender: FDA-Public Use
  Company Number: None

PATIENT
  Sex: Female

DRUGS (1)
  1. GLUCOPHAGE [Suspect]
     Indication: DIABETES MELLITUS
     Dosage: 500 MG PO BID
     Route: 048

REACTIONS (2)
  - OEDEMA PERIPHERAL [None]
  - PHARMACEUTICAL PRODUCT COMPLAINT [None]
